FAERS Safety Report 7483285-7 (Version None)
Quarter: 2011Q2

REPORT INFORMATION
  Report Type: 
  Country: None (occurrence: None)
  Receive Date: 20110509
  Receipt Date: 20110429
  Transmission Date: 20111010
  Serious: Yes (Hospitalization)
  Sender: FDA-Public Use
  Company Number: DKLU1068401

PATIENT
  Age: 27 Year
  Sex: Female
  Weight: 63.5036 kg

DRUGS (11)
  1. DIFFERIN [Concomitant]
  2. LEXAPRO FILM-COATED TABLETS (ESCITALOPRAM-TABLETS) (ESCITALOPRAM) [Concomitant]
  3. ATIVAN [Concomitant]
  4. ZONISAMIDE [Concomitant]
  5. DIASTAT (DIAZEPAM) (GEL) [Concomitant]
  6. FRISIUM (CLOBAZAM) [Concomitant]
  7. DOCUSATE SODIUM (DOCUSATE SODIUM) [Concomitant]
  8. SABRIL [Suspect]
     Indication: CONVULSION
     Dosage: 1.5 G GRAM(S), 2 IN 1 D, ORAL
     Route: 048
     Dates: start: 20110122
  9. CALCIUM (CALCIUM) [Concomitant]
  10. OXCARBAZEPINE [Concomitant]
  11. TOPIRAMATE [Concomitant]

REACTIONS (3)
  - FALL [None]
  - CONVULSION [None]
  - CERVICAL VERTEBRAL FRACTURE [None]
